FAERS Safety Report 22314523 (Version 1)
Quarter: 2023Q2

REPORT INFORMATION
  Report Type: Spontaneous
  Country: US (occurrence: None)
  Receive Date: 20230512
  Receipt Date: 20230512
  Transmission Date: 20230722
  Serious: No
  Sender: FDA-Public Use
  Company Number: None

PATIENT

DRUGS (2)
  1. DRONABINOL [Suspect]
     Active Substance: DRONABINOL
     Route: 048
  2. DRONABINOL [Suspect]
     Active Substance: DRONABINOL
     Route: 048

REACTIONS (1)
  - Product label on wrong product [None]
